FAERS Safety Report 6647006-X (Version None)
Quarter: 2010Q1

REPORT INFORMATION
  Report Type: 
  Country: None (occurrence: None)
  Receive Date: 20100323
  Receipt Date: 20100202
  Transmission Date: 20100710
  Serious: Yes (Other)
  Sender: FDA-Public Use
  Company Number: A0817754A

PATIENT
  Age: 58 Year
  Sex: Female
  Weight: 90.9 kg

DRUGS (7)
  1. LAMICTAL XR [Suspect]
     Indication: EPILEPSY
     Dosage: 100MG SINGLE DOSE
     Route: 048
     Dates: start: 20091116, end: 20091116
  2. LAMICTAL CD [Suspect]
     Indication: EPILEPSY
     Dosage: 100MG TWICE PER DAY
     Route: 048
  3. ASPIRIN [Concomitant]
  4. EXFORGE [Concomitant]
  5. SYNTHROID [Concomitant]
  6. CALCIUM + D [Concomitant]
  7. LAMOTRIGINE [Concomitant]
     Indication: EPILEPSY
     Route: 065

REACTIONS (3)
  - ADVERSE EVENT [None]
  - NAUSEA [None]
  - VOMITING [None]
